FAERS Safety Report 21626489 (Version 1)
Quarter: 2022Q4

REPORT INFORMATION
  Report Type: Spontaneous
  Country: US (occurrence: None)
  Receive Date: 20221122
  Receipt Date: 20221122
  Transmission Date: 20230112
  Serious: No
  Sender: FDA-Public Use
  Company Number: US-ROCHE-3020002

PATIENT
  Sex: Female
  Weight: 61.290 kg

DRUGS (15)
  1. LUCENTIS [Suspect]
     Active Substance: RANIBIZUMAB
     Indication: Diabetic retinal oedema
     Dosage: CURRENT PLAN IS EVERY 4-6 WEEKS ;ONGOING: YES
     Route: 065
     Dates: start: 20220106
  2. PLAVIX [Concomitant]
     Active Substance: CLOPIDOGREL BISULFATE
     Route: 048
  3. METOPROLOL [Concomitant]
     Active Substance: METOPROLOL
     Dosage: STARTED BEFORE LUCENTIS ;ONGOING: YES
     Route: 048
  4. GABAPENTIN [Concomitant]
     Active Substance: GABAPENTIN
     Indication: Neuropathy peripheral
     Dosage: 300 MG CAPSULES; TAKES 3 TO 9 TABLETS DAILY AS NEEDED; STARTED BEFORE?LUCENTIS ;ONGOING: YES
     Route: 048
  5. AMLODIPINE [Concomitant]
     Active Substance: AMLODIPINE BESYLATE
     Indication: Hypertension
     Dosage: STARTED BEFORE LUCENTIS ;ONGOING: YES
     Route: 048
  6. ATORVASTATIN [Concomitant]
     Active Substance: ATORVASTATIN
     Indication: Blood cholesterol increased
     Dosage: STARTED BEFORE LUCENTIS ;ONGOING: YES
     Route: 048
  7. EZETIMIBE [Concomitant]
     Active Substance: EZETIMIBE
     Indication: Blood cholesterol increased
     Dosage: STARTED BEFORE LUCENTIS ;ONGOING: YES
     Route: 048
  8. IRBESARTAN [Concomitant]
     Active Substance: IRBESARTAN
     Dosage: STARTED BEFORE LUCENTIS ;ONGOING: YES
     Route: 048
  9. PREDNISONE [Concomitant]
     Active Substance: PREDNISONE
     Indication: Asthma
     Dosage: STARTED BEFORE LUCENTIS ;ONGOING: YES
     Route: 048
  10. LEVALBUTEROL [Concomitant]
     Active Substance: LEVALBUTEROL
     Indication: Asthma
     Dosage: USUALLY 2 PUFFS, BUT 1-8 PUFFS/DAY AS NEEDED; STARTED BEFORE LUCENTIS ;ONGOING: YES
     Route: 055
  11. TRULICITY [Concomitant]
     Active Substance: DULAGLUTIDE
     Indication: Diabetes mellitus
     Dosage: STARTED BEFORE LUCENTIS ;ONGOING: YES
     Route: 058
  12. LANTUS [Concomitant]
     Active Substance: INSULIN GLARGINE
     Indication: Diabetes mellitus
     Dosage: 40 UNIT DOSE; STARTED BEFORE LUCENTIS ;ONGOING: YES
     Route: 058
  13. HUMALOG [Concomitant]
     Active Substance: INSULIN LISPRO
     Indication: Diabetes mellitus
     Dosage: 1-12 UNITS ON A SLIDING SCALE AS NEEDED; STARTED BEFORE LUCENTIS ;ONGOING: YES
     Route: 058
  14. VITAMIN D3 [Concomitant]
     Active Substance: CHOLECALCIFEROL
     Dosage: STARTED BEFORE LUCENTIS ;ONGOING: YES
     Route: 048
  15. FERROUS SULFATE [Concomitant]
     Active Substance: FERROUS SULFATE
     Dosage: STARTED BEFORE LUCENTIS ;ONGOING: YES
     Route: 048

REACTIONS (3)
  - Eye disorder [Not Recovered/Not Resolved]
  - Vision blurred [Not Recovered/Not Resolved]
  - Eye contusion [Not Recovered/Not Resolved]
